FAERS Safety Report 5158266-9 (Version None)
Quarter: 2006Q4

REPORT INFORMATION
  Report Type: 
  Country: None (occurrence: None)
  Receive Date: 20061121
  Receipt Date: 20061121
  Transmission Date: 20070319
  Serious: No
  Sender: FDA-Public Use
  Company Number: None

PATIENT
  Age: 35 Year
  Sex: Male
  Weight: 74.3899 kg

DRUGS (1)
  1. LEVAQUIN [Suspect]
     Indication: PROSTATITIS
     Dosage: 500MG DAILY PO
     Route: 048
     Dates: start: 20061114, end: 20061115

REACTIONS (4)
  - ABASIA [None]
  - ARTHRALGIA [None]
  - BLOOD URINE PRESENT [None]
  - PARAESTHESIA [None]
